FAERS Safety Report 23820133 (Version 1)
Quarter: 2024Q2

REPORT INFORMATION
  Report Type: Report from Study
  Country: JP (occurrence: JP)
  Receive Date: 20240506
  Receipt Date: 20240506
  Transmission Date: 20240715
  Serious: Yes (Hospitalization, Other)
  Sender: FDA-Public Use
  Company Number: JP-Accord-422514

PATIENT
  Sex: Female

DRUGS (2)
  1. CARBOPLATIN [Suspect]
     Active Substance: CARBOPLATIN
     Indication: Ovarian cancer
     Dosage: 6 CYCLE
  2. PACLITAXEL [Suspect]
     Active Substance: PACLITAXEL
     Indication: Ovarian cancer
     Dosage: 6 CYCLE

REACTIONS (1)
  - Myelodysplastic syndrome [Unknown]
